FAERS Safety Report 8499091-0 (Version None)
Quarter: 2012Q2

REPORT INFORMATION
  Report Type: 
  Country: None (occurrence: None)
  Receive Date: 20120405
  Receipt Date: 20100326
  Transmission Date: 20120825
  Serious: Yes (Other)
  Sender: FDA-Public Use
  Company Number: PHEH2010US03343

PATIENT
  Age: 82 Year
  Sex: Female

DRUGS (3)
  1. ISOSORBIDE DINITRATE [Concomitant]
  2. RECLAST [Suspect]
     Dates: start: 20091001
  3. PREDNISONE TAB [Concomitant]

REACTIONS (3)
  - PALPITATIONS [None]
  - CARDIOVERSION [None]
  - HEART RATE INCREASED [None]
